FAERS Safety Report 21267781 (Version 3)
Quarter: 2022Q4

REPORT INFORMATION
  Report Type: Report from Study
  Country: FR (occurrence: FR)
  Receive Date: 20220829
  Receipt Date: 20221012
  Transmission Date: 20230112
  Serious: Yes (Hospitalization)
  Sender: FDA-Public Use
  Company Number: FR-JAZZ-2022-FR-027933

PATIENT

DRUGS (15)
  1. CYTARABINE\DAUNORUBICIN [Suspect]
     Active Substance: CYTARABINE\DAUNORUBICIN
     Indication: Acute myeloid leukaemia
     Dosage: 200 MILLIGRAM/SQ. METER, DAILY, INDUCTION 1, D1
     Route: 042
     Dates: start: 20220601
  2. CYTARABINE\DAUNORUBICIN [Suspect]
     Active Substance: CYTARABINE\DAUNORUBICIN
     Dosage: 200 MILLIGRAM/SQ. METER, DAILY, INDUCTION 1, D3
     Route: 042
     Dates: start: 20220603
  3. CYTARABINE\DAUNORUBICIN [Suspect]
     Active Substance: CYTARABINE\DAUNORUBICIN
     Dosage: 200 MILLIGRAM/SQ. METER, DAILY, INDUCTION 1, D5
     Route: 042
     Dates: start: 20220605
  4. CYTARABINE\DAUNORUBICIN [Suspect]
     Active Substance: CYTARABINE\DAUNORUBICIN
     Dosage: 130 MILLIGRAM/SQ. METER, DAILY, CONSOLIDATION 1, D1
     Route: 042
     Dates: start: 20220730
  5. CYTARABINE\DAUNORUBICIN [Suspect]
     Active Substance: CYTARABINE\DAUNORUBICIN
     Dosage: 130 MILLIGRAM/SQ. METER, DAILY CONSOLIDATION 1, D3
     Route: 042
     Dates: start: 20220801
  6. OXAZEPAM [Concomitant]
     Active Substance: OXAZEPAM
     Indication: Anxiety
     Dosage: 10 MILLIGRAM PER DAY
     Route: 048
  7. VALACYCLOVIR [Concomitant]
     Active Substance: VALACYCLOVIR HYDROCHLORIDE
     Indication: Prophylaxis
     Dosage: 1 GRAM PER DAY
     Route: 048
  8. INSULIN GLARGINE [Concomitant]
     Active Substance: INSULIN GLARGINE
     Indication: Diabetes mellitus
     Dosage: 100 MICROLITER, DAILY
     Route: 058
  9. PENICILLIN V [Concomitant]
     Active Substance: PENICILLIN V
     Indication: Prophylaxis
     Dosage: 2 MICROLITER
     Route: 048
  10. PIPERACILLIN SODIUM\TAZOBACTAM SODIUM [Concomitant]
     Active Substance: PIPERACILLIN SODIUM\TAZOBACTAM SODIUM
     Dosage: 4-500 MILIGRAM, 1-4/DAY
     Route: 042
     Dates: start: 20220815, end: 20220816
  11. CEFEPIME [Concomitant]
     Active Substance: CEFEPIME HYDROCHLORIDE
     Indication: Febrile bone marrow aplasia
     Dosage: 2 GRAM, TID
     Route: 042
     Dates: start: 20220816
  12. HEPARIN [Concomitant]
     Active Substance: HEPARIN SODIUM
     Dosage: 25000 MICROLITER, DAILY
     Route: 042
     Dates: start: 20220817
  13. FUNGIZONE [Concomitant]
     Active Substance: AMPHOTERICIN B
     Indication: Prophylaxis
     Dosage: UNK
     Route: 048
  14. BICALAN [BICALUTAMIDE] [Concomitant]
     Indication: Prophylaxis
     Route: 048
  15. VANCOMYCIN [Concomitant]
     Active Substance: VANCOMYCIN
     Dosage: 3400 MILIGRAM
     Route: 042
     Dates: start: 20220901

REACTIONS (4)
  - Aplasia [Recovered/Resolved]
  - Pyrexia [Recovered/Resolved]
  - Rash [Recovered/Resolved]
  - Thrombosis [Not Recovered/Not Resolved]

NARRATIVE: CASE EVENT DATE: 20220808
